FAERS Safety Report 8610002-7 (Version None)
Quarter: 2012Q3

REPORT INFORMATION
  Report Type: 
  Country: None (occurrence: None)
  Receive Date: 20120822
  Receipt Date: 20120718
  Transmission Date: 20120928
  Serious: Yes (Other)
  Sender: FDA-Public Use
  Company Number: JP-009507513-1208JPN005263

PATIENT

DRUGS (9)
  1. REBETOL [Suspect]
     Indication: HEPATITIS C
     Route: 048
     Dates: start: 20120409, end: 20120415
  2. VOLTAREN [Concomitant]
     Indication: PYREXIA
     Dosage: 50 MG ONCE
     Route: 054
     Dates: start: 20120409
  3. REBETOL [Suspect]
     Dosage: 400 MG, ONCE
     Route: 048
     Dates: start: 20120618
  4. TELAVIC [Suspect]
     Indication: HEPATITIS C
     Dosage: 1500 MG, ONCE
     Route: 048
     Dates: start: 20120101
  5. VOLTAREN-XR [Concomitant]
     Indication: PYREXIA
     Dosage: 37.5 MG, ONCE
     Route: 048
     Dates: start: 20120426
  6. PEG-INTRON [Suspect]
     Indication: HEPATITIS C
     Dosage: 1.027MCG/KG/WEEK
     Route: 058
     Dates: start: 20120409
  7. REBETOL [Suspect]
     Dosage: 200 MG, ONCE
     Route: 048
     Dates: start: 20120611, end: 20120617
  8. ANTEBATE [Concomitant]
     Indication: RASH
     Dosage: PROPER QUANTITY/DAY
     Route: 061
     Dates: start: 20120415
  9. REBETOL [Suspect]
     Dosage: 600 MG, ONCE
     Route: 048
     Dates: start: 20120416, end: 20120610

REACTIONS (5)
  - ANAEMIA [None]
  - RENAL IMPAIRMENT [None]
  - PRURITUS [None]
  - HYPERURICAEMIA [None]
  - RASH [None]
